FAERS Safety Report 6179845-6 (Version None)
Quarter: 2009Q2

REPORT INFORMATION
  Report Type: 
  Country: None (occurrence: None)
  Receive Date: 20090505
  Receipt Date: 20090428
  Transmission Date: 20091009
  Serious: Yes (Death)
  Sender: FDA-Public Use
  Company Number: US-JNJFOC-20090407136

PATIENT

DRUGS (1)
  1. INTELENCE [Suspect]
     Indication: HIV INFECTION

REACTIONS (2)
  - DEATH [None]
  - RASH [None]
